FAERS Safety Report 18106198 (Version 2)
Quarter: 2020Q3

REPORT INFORMATION
  Report Type: Spontaneous
  Country: BE (occurrence: BE)
  Receive Date: 20200803
  Receipt Date: 20200825
  Transmission Date: 20201103
  Serious: Yes (Hospitalization, Other)
  Sender: FDA-Public Use
  Company Number: BE-MYLANLABS-2020M1068168

PATIENT
  Age: 61 Year
  Sex: Male
  Weight: 102 kg

DRUGS (12)
  1. MOXON [Concomitant]
     Active Substance: MOXONIDINE
     Indication: PRODUCT USED FOR UNKNOWN INDICATION
     Dosage: UNK
     Route: 065
     Dates: start: 20171129
  2. IRINOTECAN [Suspect]
     Active Substance: IRINOTECAN
     Dosage: 399 MILLIGRAM, CYCLE (399 MG, EVERY 2 WEEKS)
     Route: 042
     Dates: start: 20180508
  3. EMCONCOR [Concomitant]
     Active Substance: BISOPROLOL FUMARATE
     Indication: PRODUCT USED FOR UNKNOWN INDICATION
     Dosage: UNK
     Route: 065
     Dates: start: 20171121
  4. IRINOTECAN [Suspect]
     Active Substance: IRINOTECAN
     Indication: COLORECTAL CANCER METASTATIC
     Dosage: 399 MILLIGRAM, CYCLE (399 MG, EVERY 2 WEEKS)
     Route: 042
     Dates: start: 20180321, end: 20180417
  5. FLUOROURACIL. [Suspect]
     Active Substance: FLUOROURACIL
     Indication: COLORECTAL CANCER METASTATIC
     Dosage: 885.6 MG INTRAVENOUS (IV) BOLUS AND 5313.4 MG IV INFUSION EVERY TWO WEEKS
     Route: 042
     Dates: start: 20180321, end: 20180417
  6. FLUOROURACIL. [Suspect]
     Active Substance: FLUOROURACIL
     Dosage: 885.6 MG INTRAVENOUS (IV) BOLUS AND 5313.4 MG IV INFUSION EVERY TWO WEEKS
     Route: 042
     Dates: start: 20180508
  7. FLUOROURACIL. [Suspect]
     Active Substance: FLUOROURACIL
     Dosage: 885.6 MG INTRAVENOUS (IV) BOLUS AND 5313.4 MG IV INFUSION EVERY TWO WEEKS
     Route: 042
     Dates: start: 20180508
  8. MICARDIS PLUS [Concomitant]
     Active Substance: HYDROCHLOROTHIAZIDE\TELMISARTAN
     Indication: PRODUCT USED FOR UNKNOWN INDICATION
     Dosage: UNK
     Route: 065
     Dates: start: 20171127
  9. LERCANIDIPIN SANDOZ [Concomitant]
     Active Substance: LERCANIDIPINE HYDROCHLORIDE
     Indication: PRODUCT USED FOR UNKNOWN INDICATION
     Dosage: UNK
     Route: 065
     Dates: start: 20171121
  10. FLUOROURACIL. [Suspect]
     Active Substance: FLUOROURACIL
     Dosage: 885.6 MG INTRAVENOUS (IV) BOLUS AND 5313.4 MG IV INFUSION EVERY TWO WEEKS
     Route: 042
     Dates: start: 20180321, end: 20180417
  11. LEUCOVORIN                         /00566701/ [Suspect]
     Active Substance: LEUCOVORIN
     Dosage: 443 MILLIGRAM, CYCLE (443 MG, EVERY 2 WEEKS)
     Route: 042
     Dates: start: 20180508
  12. LEUCOVORIN                         /00566701/ [Suspect]
     Active Substance: LEUCOVORIN
     Indication: COLORECTAL CANCER METASTATIC
     Dosage: 443 MILLIGRAM, CYCLE (443 MG, EVERY 2 WEEKS)
     Route: 042
     Dates: start: 20180321, end: 20180417

REACTIONS (2)
  - Pyelonephritis [Recovered/Resolved]
  - Klebsiella infection [Unknown]

NARRATIVE: CASE EVENT DATE: 20180503
